FAERS Safety Report 15591022 (Version 1)
Quarter: 2018Q4

REPORT INFORMATION
  Report Type: Spontaneous
  Country: CN (occurrence: CN)
  Receive Date: 20181106
  Receipt Date: 20181106
  Transmission Date: 20190205
  Serious: Yes (Other)
  Sender: FDA-Public Use
  Company Number: CN-PFIZER INC-2018447472

PATIENT
  Sex: Male

DRUGS (1)
  1. DIFLUCAN [Suspect]
     Active Substance: FLUCONAZOLE
     Indication: PNEUMONIA CRYPTOCOCCAL
     Dosage: UNK
     Route: 048

REACTIONS (2)
  - Kidney infection [Unknown]
  - Renal hydrocele [Unknown]
